FAERS Safety Report 4753401-6 (Version None)
Quarter: 2005Q3

REPORT INFORMATION
  Report Type: 
  Country: None (occurrence: None)
  Receive Date: 20050824
  Receipt Date: 20050810
  Transmission Date: 20060218
  Serious: Yes (Hospitalization)
  Sender: FDA-Public Use
  Company Number: USA0508105096

PATIENT
  Sex: Female

DRUGS (6)
  1. CYMBALTA [Suspect]
     Indication: DIABETIC NEUROPATHY
     Dosage: 30 MG DAY
     Dates: start: 20050701, end: 20050701
  2. ARICEPT [Concomitant]
  3. NAMENDA [Concomitant]
  4. GLUCOPHAGE [Concomitant]
  5. BENICAR [Concomitant]
  6. KEPPRA [Concomitant]

REACTIONS (4)
  - AGITATION [None]
  - CATATONIA [None]
  - HYPOTENSION [None]
  - THERAPEUTIC RESPONSE DECREASED [None]
